FAERS Safety Report 25165012 (Version 1)
Quarter: 2025Q2

REPORT INFORMATION
  Report Type: Spontaneous
  Country: AU (occurrence: AU)
  Receive Date: 20250406
  Receipt Date: 20250406
  Transmission Date: 20250717
  Serious: Yes (Death, Other)
  Sender: JOHNSON AND JOHNSON
  Company Number: AU-JNJFOC-20250376817

PATIENT
  Age: 47 Year
  Sex: Male

DRUGS (4)
  1. INVEGA [Suspect]
     Active Substance: PALIPERIDONE
     Indication: Product used for unknown indication
     Route: 048
  2. ACETAMINOPHEN [Suspect]
     Active Substance: ACETAMINOPHEN
  3. UNSPECIFIED INGREDIENT [Suspect]
     Active Substance: UNSPECIFIED INGREDIENT
  4. BUPRENORPHINE [Suspect]
     Active Substance: BUPRENORPHINE

REACTIONS (8)
  - Death [Fatal]
  - Immobile [Unknown]
  - Hallucination [Unknown]
  - Pain [Unknown]
  - Constipation [Unknown]
  - Decreased appetite [Unknown]
  - Abdominal pain [Unknown]
  - Dysuria [Unknown]
